FAERS Safety Report 16747347 (Version 1)
Quarter: 2019Q3

REPORT INFORMATION
  Report Type: Spontaneous
  Country: FR (occurrence: FR)
  Receive Date: 20190827
  Receipt Date: 20190827
  Transmission Date: 20191005
  Serious: Yes (Hospitalization, Other)
  Sender: FDA-Public Use
  Company Number: FR-SA-2019SA238617

PATIENT
  Age: 78 Year
  Sex: Male

DRUGS (2)
  1. TAVANIC [Suspect]
     Active Substance: LEVOFLOXACIN
     Indication: NOSOCOMIAL INFECTION
     Dosage: UNK
     Dates: start: 201907
  2. RIFAMPICIN [Suspect]
     Active Substance: RIFAMPIN
     Indication: NOSOCOMIAL INFECTION
     Dosage: UNK
     Dates: start: 201907

REACTIONS (1)
  - Hepatocellular injury [Not Recovered/Not Resolved]

NARRATIVE: CASE EVENT DATE: 20190726
